FAERS Safety Report 6439771-1 (Version None)
Quarter: 2009Q4

REPORT INFORMATION
  Report Type: 
  Country: None (occurrence: None)
  Receive Date: 20091113
  Receipt Date: 20091015
  Transmission Date: 20100525
  Serious: No
  Sender: FDA-Public Use
  Company Number: US-BAYER-200915770BCC

PATIENT
  Age: 22 Year
  Sex: Female
  Weight: 107 kg

DRUGS (2)
  1. ALEVE [Suspect]
     Indication: DYSMENORRHOEA
     Dosage: TOOK 1 OR 2 ALEVE TABLETS ON EACH DAY
     Route: 048
  2. UNKNOWN MORNING AFTER PILL [Concomitant]
     Route: 065

REACTIONS (2)
  - ABDOMINAL PAIN [None]
  - PAIN [None]
